FAERS Safety Report 7993471 (Version 3)
Quarter: 2012Q4

REPORT INFORMATION
  Report Type: Report from Study
  Country: CA (occurrence: CA)
  Receive Date: 20110616
  Receipt Date: 20121003
  Transmission Date: 20130627
  Serious: Yes (Hospitalization)
  Sender: FDA-Public Use
  Company Number: CA-BRISTOL-MYERS SQUIBB COMPANY-15817794

PATIENT
  Age: 59 Year
  Sex: Male

DRUGS (5)
  1. ABATACEPT [Suspect]
     Route: 058
  2. METHOTREXATE [Suspect]
     Dates: start: 20081115
  3. FOLIC ACID [Concomitant]
     Dates: start: 20030130
  4. RAMIPRIL [Concomitant]
     Dates: start: 20051110
  5. GLICLAZIDE [Concomitant]
     Dates: start: 20070214

REACTIONS (1)
  - Pneumonia [Recovered/Resolved]
